FAERS Safety Report 8774550 (Version 1)
Quarter: 2012Q4

REPORT INFORMATION
  Report Type: 
  Country: US (occurrence: US)
  Receive Date: 20120907
  Receipt Date: 20120907
  Transmission Date: 20130627
  Serious: No
  Sender: FDA-Public Use
  Company Number: US-BIOGENIDEC-2012BI035564

PATIENT
  Age: 42 Year
  Sex: Female

DRUGS (1)
  1. TYSABRI [Suspect]
     Indication: MULTIPLE SCLEROSIS
     Route: 042
     Dates: start: 20110401

REACTIONS (11)
  - Trigeminal neuralgia [Recovered/Resolved]
  - Eating disorder [Recovered/Resolved]
  - Fluid intake reduced [Recovered/Resolved]
  - Blood sodium decreased [Recovered/Resolved]
  - Coordination abnormal [Recovered/Resolved]
  - Incoherent [Recovered/Resolved]
  - Fall [Recovered/Resolved]
  - Skin lesion [Not Recovered/Not Resolved]
  - Gait disturbance [Not Recovered/Not Resolved]
  - Wound [Not Recovered/Not Resolved]
  - Contusion [Not Recovered/Not Resolved]
